FAERS Safety Report 8988131 (Version 1)
Quarter: 2012Q4

REPORT INFORMATION
  Report Type: 
  Country: FR (occurrence: FR)
  Receive Date: 20121227
  Receipt Date: 20121227
  Transmission Date: 20130627
  Serious: Yes (Hospitalization)
  Sender: FDA-Public Use
  Company Number: FR-ROCHE-1173239

PATIENT
  Age: 76 Year
  Sex: Female

DRUGS (5)
  1. MODOPAR [Suspect]
     Indication: PARKINSON^S DISEASE
     Route: 048
  2. MODOPAR [Suspect]
     Route: 048
  3. RIVOTRIL [Suspect]
     Indication: PARKINSON^S DISEASE
     Dosage: 15 drops in the evening
     Route: 065
     Dates: end: 20121004
  4. PARKINANE [Suspect]
     Indication: PARKINSON^S DISEASE
     Route: 048
  5. DEPAKINE CHRONO [Suspect]
     Indication: EPILEPSY
     Route: 048
     Dates: end: 20121004

REACTIONS (3)
  - Confusional state [Recovering/Resolving]
  - Dysarthria [Recovering/Resolving]
  - Dyskinesia [Recovering/Resolving]
